FAERS Safety Report 9680747 (Version 4)
Quarter: 2014Q1

REPORT INFORMATION
  Report Type: Report from Study
  Country: IN (occurrence: IN)
  Receive Date: 20131111
  Receipt Date: 20140221
  Transmission Date: 20141002
  Serious: Yes (Other)
  Sender: FDA-Public Use
  Company Number: PHHY2013IN124342

PATIENT
  Age: 53 Year
  Sex: Male
  Weight: 61.6 kg

DRUGS (12)
  1. MYCOPHENOLIC ACID [Suspect]
     Indication: RENAL TRANSPLANT
     Dosage: 1260 MG (360 TDS PLUS 180 ONCE DAILY)
     Dates: start: 20110726
  2. MYCOPHENOLIC ACID [Suspect]
     Dosage: 1260 MG (360 TDS PLUS 180 ONCE DAILY)
     Dates: start: 20110810
  3. MYCOPHENOLIC ACID [Suspect]
     Dosage: 360 MG, TID
     Dates: start: 20110829
  4. MYCOPHENOLIC ACID [Suspect]
     Dosage: 360 MG, TID
     Dates: start: 20111028
  5. MYCOPHENOLIC ACID [Suspect]
     Dosage: 360 MG, TID
     Dates: start: 20120127
  6. MYCOPHENOLIC ACID [Suspect]
     Dosage: 360 MG, TID
     Dates: start: 20120727
  7. SIMULECT [Suspect]
     Indication: RENAL TRANSPLANT
     Dosage: UNK UKN, UNK
     Dates: start: 20110726
  8. TACROLIMUS [Suspect]
     Indication: RENAL TRANSPLANT
     Dosage: 0.1 MG/KG BODY WEIGHT
     Dates: start: 20110726
  9. TACROLIMUS [Suspect]
     Dosage: 0.06 MG/KG, BODY WEIGHT
     Dates: start: 20110810
  10. COTRIMOXAZOLE [Concomitant]
     Dosage: UNK UKN, UNK
  11. ANTIBIOTICS [Concomitant]
     Dosage: UNK UKN, UNK
  12. CORTICOSTEROIDS [Concomitant]
     Dosage: UNK UKN, UNK

REACTIONS (7)
  - Renal failure chronic [Recovered/Resolved]
  - Perinephric collection [Recovered/Resolved]
  - Diabetic nephropathy [Recovered/Resolved]
  - Ascites [Recovered/Resolved]
  - Diabetes mellitus inadequate control [Recovered/Resolved]
  - Lower respiratory tract infection [Recovered/Resolved]
  - Immunosuppressant drug level increased [Recovered/Resolved]
